FAERS Safety Report 14445727 (Version 1)
Quarter: 2018Q1

REPORT INFORMATION
  Report Type: Spontaneous
  Country: US (occurrence: US)
  Receive Date: 20180126
  Receipt Date: 20180126
  Transmission Date: 20180509
  Serious: No
  Sender: FDA-Public Use
  Company Number: US-ABBVIE-17K-163-2069560-00

PATIENT
  Sex: Female

DRUGS (1)
  1. HUMIRA [Suspect]
     Active Substance: ADALIMUMAB
     Indication: PRODUCT USED FOR UNKNOWN INDICATION
     Route: 058

REACTIONS (10)
  - Pain [Unknown]
  - Malaise [Unknown]
  - Coccydynia [Unknown]
  - Nausea [Unknown]
  - Back pain [Unknown]
  - Arthralgia [Unknown]
  - Irritable bowel syndrome [Unknown]
  - Fatigue [Unknown]
  - Crohn^s disease [Unknown]
  - Asthenia [Unknown]

NARRATIVE: CASE EVENT DATE: 20170810
